FAERS Safety Report 5877209-3 (Version None)
Quarter: 2008Q3

REPORT INFORMATION
  Report Type: 
  Country: None (occurrence: None)
  Receive Date: 20080910
  Receipt Date: 20080902
  Transmission Date: 20090109
  Serious: Yes (Death, Life-Threatening, Hospitalization)
  Sender: FDA-Public Use
  Company Number: BE-PFIZER INC-2008071202

PATIENT
  Sex: Male
  Weight: 45 kg

DRUGS (5)
  1. SUTENT [Suspect]
     Indication: METASTATIC RENAL CELL CARCINOMA
     Route: 048
     Dates: start: 20080716, end: 20080811
  2. SOLU-MEDROL [Concomitant]
     Route: 048
     Dates: start: 20080721, end: 20080821
  3. PANTOZOL [Concomitant]
     Route: 048
     Dates: start: 20080702, end: 20080812
  4. ASAFLOW [Concomitant]
     Route: 048
     Dates: end: 20080812
  5. ALL OTHER THERAPEUTIC PRODUCTS [Concomitant]
     Route: 048
     Dates: start: 20080709, end: 20080812

REACTIONS (3)
  - DIVERTICULITIS [None]
  - PERITONITIS [None]
  - RESPIRATORY FAILURE [None]
